FAERS Safety Report 21581233 (Version 2)
Quarter: 2023Q1

REPORT INFORMATION
  Report Type: Other
  Country: JP (occurrence: JP)
  Receive Date: 20221111
  Receipt Date: 20230217
  Transmission Date: 20230417
  Serious: Yes (Hospitalization)
  Sender: FDA-Public Use
  Company Number: JP-CHUGAI-2022044620

PATIENT
  Age: 63 Year
  Sex: Male
  Weight: 69 kg

DRUGS (9)
  1. AVASTIN [Suspect]
     Active Substance: BEVACIZUMAB
     Indication: Anal cancer
     Dosage: 335 MILLIGRAM, ONCE/2WEEKS
     Route: 041
     Dates: start: 20131212, end: 20131226
  2. OXALIPLATIN [Concomitant]
     Active Substance: OXALIPLATIN
     Indication: Anal cancer
     Dosage: 145 MILLIGRAM, ONCE/2WEEKS
     Route: 041
     Dates: start: 20131212, end: 20131226
  3. OXALIPLATIN [Concomitant]
     Active Substance: OXALIPLATIN
     Dosage: 145 MILLIGRAM, ONCE/2WEEKS
     Route: 041
     Dates: start: 20140115
  4. LEVOLEUCOVORIN CALCIUM [Concomitant]
     Active Substance: LEVOLEUCOVORIN CALCIUM
     Indication: Anal cancer
     Dosage: 340 MICROGRAM, ONCE/2WEEKS
     Route: 041
     Dates: start: 20131212, end: 20131226
  5. LEVOLEUCOVORIN CALCIUM [Concomitant]
     Active Substance: LEVOLEUCOVORIN CALCIUM
     Dosage: 340 MICROGRAM, ONCE/2WEEKS
     Route: 041
     Dates: start: 20140115
  6. FLUOROURACIL [Concomitant]
     Active Substance: FLUOROURACIL
     Indication: Anal cancer
     Dosage: 680 MICROGRAM, ONCE/2WEEKS
     Route: 042
     Dates: start: 20131212, end: 20131226
  7. FLUOROURACIL [Concomitant]
     Active Substance: FLUOROURACIL
     Dosage: 4000 MICROGRAM, ONCE/2WEEKS
     Route: 042
     Dates: start: 20131212, end: 20131228
  8. FLUOROURACIL [Concomitant]
     Active Substance: FLUOROURACIL
     Dosage: 680 MICROGRAM, ONCE/2WEEKS
     Route: 042
     Dates: start: 20140115
  9. FLUOROURACIL [Concomitant]
     Active Substance: FLUOROURACIL
     Dosage: 4000 MICROGRAM, ONCE/2WEEKS
     Route: 042
     Dates: start: 20140115

REACTIONS (2)
  - Tumour perforation [Recovered/Resolved]
  - Off label use [Unknown]

NARRATIVE: CASE EVENT DATE: 20140103
